FAERS Safety Report 22090938 (Version 5)
Quarter: 2024Q2

REPORT INFORMATION
  Report Type: Spontaneous
  Country: US (occurrence: US)
  Receive Date: 20230314
  Receipt Date: 20240517
  Transmission Date: 20240715
  Serious: No
  Sender: FDA-Public Use
  Company Number: US-BIOGEN-2023BI01192591

PATIENT
  Sex: Female

DRUGS (7)
  1. PLEGRIDY [Suspect]
     Active Substance: PEGINTERFERON BETA-1A
     Indication: Multiple sclerosis
     Dosage: INJECT 63 MCG SUBCUTANEOUSLY ON DAY 1
     Route: 050
  2. PLEGRIDY [Suspect]
     Active Substance: PEGINTERFERON BETA-1A
     Dosage: 94 MCG ON DAY 15
     Route: 050
  3. PLEGRIDY [Suspect]
     Active Substance: PEGINTERFERON BETA-1A
     Route: 050
  4. PLEGRIDY [Suspect]
     Active Substance: PEGINTERFERON BETA-1A
     Indication: Multiple sclerosis
     Dosage: INJECT 125 MCG (1 PEN) SUBCUTANEOUSLY UNDER THE SKIN EVERY OTHER WEEK
     Route: 050
  5. EXCEDRIN MIGRAINE [Concomitant]
     Active Substance: ACETAMINOPHEN\ASPIRIN\CAFFEINE
     Route: 050
  6. VITAMIN D3 [Concomitant]
     Active Substance: CHOLECALCIFEROL
     Route: 050
  7. MOUNJARO [Concomitant]
     Active Substance: TIRZEPATIDE
     Route: 050

REACTIONS (7)
  - Product dose omission in error [Unknown]
  - Rash [Unknown]
  - Dizziness [Unknown]
  - Asthenia [Unknown]
  - Pruritus [Unknown]
  - Injection site pain [Unknown]
  - Influenza like illness [Recovered/Resolved]

NARRATIVE: CASE EVENT DATE: 20230101
